FAERS Safety Report 23529389 (Version 2)
Quarter: 2024Q1

REPORT INFORMATION
  Report Type: Spontaneous
  Country: US (occurrence: US)
  Receive Date: 20240216
  Receipt Date: 20240325
  Transmission Date: 20240410
  Serious: No
  Sender: FDA-Public Use
  Company Number: US-TAKEDA-2024TUS014193

PATIENT
  Sex: Female
  Weight: 51 kg

DRUGS (4)
  1. VYVANSE [Suspect]
     Active Substance: LISDEXAMFETAMINE DIMESYLATE
     Indication: Attention deficit hyperactivity disorder
     Dosage: 20 MILLIGRAM, QD
     Route: 065
     Dates: start: 202303
  2. VYVANSE [Suspect]
     Active Substance: LISDEXAMFETAMINE DIMESYLATE
     Indication: Bipolar disorder
  3. LAMICTAL [Concomitant]
     Active Substance: LAMOTRIGINE
     Indication: Bipolar disorder
     Dosage: UNK
     Route: 065
  4. MIRENA [Concomitant]
     Active Substance: LEVONORGESTREL

REACTIONS (5)
  - Product availability issue [Unknown]
  - Frustration tolerance decreased [Unknown]
  - Stress [Unknown]
  - Product use issue [Unknown]
  - Inappropriate schedule of product administration [Unknown]
